FAERS Safety Report 24461695 (Version 1)
Quarter: 2024Q4

REPORT INFORMATION
  Report Type: Report from Study
  Country: JP (occurrence: JP)
  Receive Date: 20241018
  Receipt Date: 20241018
  Transmission Date: 20250115
  Serious: No
  Sender: ROCHE
  Company Number: JP-ROCHE-3570012

PATIENT
  Age: 64 Year
  Sex: Male

DRUGS (5)
  1. RITUXIMAB [Suspect]
     Active Substance: RITUXIMAB
     Indication: Central nervous system lymphoma
     Route: 065
  2. METHOTREXATE [Concomitant]
     Active Substance: METHOTREXATE
     Route: 050
  3. RANIMUSTINE [Concomitant]
     Active Substance: RANIMUSTINE
     Route: 050
  4. METHYLPREDNISOLONE [Concomitant]
     Active Substance: METHYLPREDNISOLONE
     Route: 050
  5. PROCARBAZINE [Concomitant]
     Active Substance: PROCARBAZINE
     Route: 050

REACTIONS (1)
  - Hepatitis B reactivation [Unknown]
